FAERS Safety Report 5892333-7 (Version None)
Quarter: 2008Q3

REPORT INFORMATION
  Report Type: 
  Country: None (occurrence: None)
  Receive Date: 20080919
  Receipt Date: 20080919
  Transmission Date: 20090109
  Serious: Yes (Death)
  Sender: FDA-Public Use
  Company Number: None

PATIENT
  Sex: Male

DRUGS (1)
  1. ENALAPRIL MALEATE [Suspect]
     Indication: HYPERTENSION
     Dosage: 20 MG TWICE DAILY PO SEVERAL YEARS OF USE
     Route: 048

REACTIONS (8)
  - CARDIAC ARREST [None]
  - HEART RATE INCREASED [None]
  - HYPOTENSION [None]
  - LARYNGEAL OEDEMA [None]
  - LOCALISED OEDEMA [None]
  - NO THERAPEUTIC RESPONSE [None]
  - OXYGEN SATURATION DECREASED [None]
  - SWOLLEN TONGUE [None]
